FAERS Safety Report 19545442 (Version 1)
Quarter: 2021Q3

REPORT INFORMATION
  Report Type: Spontaneous
  Country: IL (occurrence: IL)
  Receive Date: 20210714
  Receipt Date: 20210714
  Transmission Date: 20211014
  Serious: Yes (Other)
  Sender: FDA-Public Use
  Company Number: IL-TEVA-2021-IL-1931437

PATIENT
  Age: 42 Year
  Sex: Female

DRUGS (1)
  1. HEXAKAPRON [Suspect]
     Active Substance: TRANEXAMIC ACID
     Indication: HAEMORRHAGE
     Dosage: DOSAGE: 1000
     Route: 065
     Dates: start: 20150101

REACTIONS (2)
  - Rash [Unknown]
  - Burning sensation [Unknown]
